FAERS Safety Report 17982108 (Version 1)
Quarter: 2020Q3

REPORT INFORMATION
  Report Type: Report from Study
  Country: US (occurrence: US)
  Receive Date: 20200706
  Receipt Date: 20200706
  Transmission Date: 20201103
  Serious: Yes (Hospitalization)
  Sender: FDA-Public Use
  Company Number: US-ROCHE-2634728

PATIENT
  Age: 62 Year
  Sex: Female

DRUGS (2)
  1. VISMODEGIB. [Suspect]
     Active Substance: VISMODEGIB
     Indication: NEOPLASM MALIGNANT
     Route: 048
  2. TRASTUZUMAB EMTANSINE [Suspect]
     Active Substance: ADO-TRASTUZUMAB EMTANSINE
     Indication: NEOPLASM MALIGNANT
     Dosage: THERAPY START DATE: 13/MAR/2019
     Route: 042

REACTIONS (2)
  - Pneumonia [Unknown]
  - Vomiting [Recovered/Resolved]

NARRATIVE: CASE EVENT DATE: 20180808
